FAERS Safety Report 9319668 (Version 1)
Quarter: 2013Q1

REPORT INFORMATION
  Report Type: Spontaneous
  Country: GR (occurrence: None)
  Receive Date: 20121129
  Receipt Date: 20121129
  Transmission Date: 20140127
  Serious: Yes (Hospitalization)
  Sender: FDA-Public Use
  Company Number: 2012SA011505

PATIENT
  Age: 67 Year
  Sex: Male

DRUGS (3)
  1. LANTUS SOLOSTAR (INSULIN GLARGINE) [Suspect]
     Indication: BLOOD GLUCOSE INCREASED
     Route: 058
     Dates: start: 2011
  2. SOLOSTAR (SOLOSTAR) [Suspect]
     Indication: DRUG THERAPY
     Dates: start: 2011
  3. HUMALOG [Concomitant]

REACTIONS (4)
  - Cardiac failure [None]
  - Injection site haemorrhage [None]
  - Blood glucose increased [None]
  - Needle issue [None]
